FAERS Safety Report 9850758 (Version 2)
Quarter: 2014Q1

REPORT INFORMATION
  Report Type: Spontaneous
  Country: FR (occurrence: FR)
  Receive Date: 20140128
  Receipt Date: 20140131
  Transmission Date: 20141002
  Serious: Yes (Hospitalization)
  Sender: FDA-Public Use
  Company Number: FR-PFIZER INC-2014022927

PATIENT
  Age: 58 Year
  Sex: Female

DRUGS (10)
  1. INIPOMP [Suspect]
     Dosage: 20 MG, DAILY
     Route: 048
  2. TAHOR [Suspect]
     Indication: INFARCTION
     Dosage: 40 MG, DAILY
     Route: 048
  3. LASILIX [Suspect]
     Dosage: 20 MG, DAILY
     Route: 048
  4. ADANCOR [Concomitant]
     Dosage: UNK
  5. KARDEGIC [Concomitant]
     Dosage: UNK
  6. TRIATEC [Concomitant]
     Dosage: UNK
  7. DOLIPRANE [Concomitant]
     Dosage: UNK
  8. TOPALGIC [Concomitant]
     Dosage: UNK
  9. PREVISCAN [Concomitant]
     Dosage: UNK
  10. VENTOLINE [Concomitant]
     Dosage: UNK

REACTIONS (2)
  - Pancreatitis acute [Unknown]
  - Abdominal pain upper [Recovered/Resolved]
